FAERS Safety Report 8016426-3 (Version None)
Quarter: 2011Q4

REPORT INFORMATION
  Report Type: 
  Country: None (occurrence: None)
  Receive Date: 20111230
  Receipt Date: 20111221
  Transmission Date: 20120403
  Serious: Yes (Congenital Anomaly)
  Sender: FDA-Public Use
  Company Number: US-ELI_LILLY_AND_COMPANY-US201112006905

PATIENT
  Sex: Female

DRUGS (1)
  1. PROZAC [Suspect]
     Dosage: UNK
     Route: 064
     Dates: end: 19950704

REACTIONS (3)
  - FOETAL EXPOSURE DURING PREGNANCY [None]
  - TALIPES [None]
  - SPINA BIFIDA [None]
